FAERS Safety Report 24617025 (Version 2)
Quarter: 2024Q4

REPORT INFORMATION
  Report Type: Spontaneous
  Country: US (occurrence: US)
  Receive Date: 20241114
  Receipt Date: 20241128
  Transmission Date: 20250115
  Serious: No
  Sender: ABBVIE
  Company Number: US-ABBVIE-6001080

PATIENT
  Age: 56 Year
  Sex: Female

DRUGS (2)
  1. SKYRIZI [Suspect]
     Active Substance: RISANKIZUMAB-RZAA
     Indication: Psoriatic arthropathy
     Route: 058
     Dates: start: 20241105
  2. KLONOPIN [Concomitant]
     Active Substance: CLONAZEPAM
     Indication: Anxiety
     Dosage: 2 TABLETS AT BEDTIME, HOWEVER SHE STATES SHE WAS PRESCRIBED TO TAKE 1

REACTIONS (9)
  - Vasodilatation [Unknown]
  - Dyspnoea [Unknown]
  - Palpitations [Unknown]
  - Injection site erythema [Recovered/Resolved]
  - Stress [Unknown]
  - Cardiac disorder [Unknown]
  - Photophobia [Unknown]
  - Hyperhidrosis [Unknown]
  - Injection site rash [Unknown]

NARRATIVE: CASE EVENT DATE: 20241101
